FAERS Safety Report 25480877 (Version 5)
Quarter: 2025Q3

REPORT INFORMATION
  Report Type: Report from Study
  Country: US (occurrence: US)
  Receive Date: 20250625
  Receipt Date: 20250916
  Transmission Date: 20251021
  Serious: No
  Sender: MALLINCKRODT
  Company Number: US-MALLINCKRODT-MNK202503861

PATIENT
  Age: 50 Year
  Sex: Female

DRUGS (2)
  1. CORTICOTROPIN [Suspect]
     Active Substance: CORTICOTROPIN
     Indication: Rheumatoid arthritis
     Route: 058
     Dates: start: 20250620
  2. TOPAMAX [Concomitant]
     Active Substance: TOPIRAMATE
     Dosage: 1 TABLET

REACTIONS (8)
  - Panic attack [Unknown]
  - Insomnia [Recovered/Resolved]
  - Cushingoid [Unknown]
  - Weight increased [Unknown]
  - Increased appetite [Recovering/Resolving]
  - Abdominal distension [Unknown]
  - Injection site bruising [Unknown]
  - Inappropriate schedule of product administration [Unknown]

NARRATIVE: CASE EVENT DATE: 20250101
